FAERS Safety Report 12815403 (Version 3)
Quarter: 2016Q4

REPORT INFORMATION
  Report Type: Spontaneous
  Country: US (occurrence: US)
  Receive Date: 20161005
  Receipt Date: 20161230
  Transmission Date: 20170207
  Serious: Yes (Other)
  Sender: FDA-Public Use
  Company Number: US-BAYER-2016-191964

PATIENT
  Age: 28 Year
  Sex: Female

DRUGS (2)
  1. MIRENA [Suspect]
     Active Substance: LEVONORGESTREL
  2. MIRENA [Suspect]
     Active Substance: LEVONORGESTREL
     Dosage: 20 MCG/24HR, CONT
     Route: 015
     Dates: start: 20121126, end: 20160923

REACTIONS (5)
  - Device issue [None]
  - Genital haemorrhage [None]
  - Embedded device [None]
  - Vaginal odour [None]
  - Device malfunction [None]

NARRATIVE: CASE EVENT DATE: 20150925
